FAERS Safety Report 15901968 (Version 2)
Quarter: 2019Q2

REPORT INFORMATION
  Report Type: Spontaneous
  Country: JP (occurrence: JP)
  Receive Date: 20190201
  Receipt Date: 20190422
  Transmission Date: 20190711
  Serious: Yes (Other)
  Sender: FDA-Public Use
  Company Number: JP-009507513-1901JPN002504J

PATIENT
  Age: 8 Decade
  Sex: Male

DRUGS (8)
  1. E KEPPRA [Concomitant]
     Active Substance: LEVETIRACETAM
     Indication: SEIZURE
     Dosage: 1000 MILLIGRAM, BID
     Route: 048
     Dates: start: 201703
  2. TEMODAL [Suspect]
     Active Substance: TEMOZOLOMIDE
     Dosage: 200 MILLIGRAM, QD
     Route: 041
     Dates: start: 20190112, end: 20190113
  3. SHAKUYAKUKANZOTO [Concomitant]
     Active Substance: HERBALS
     Indication: MUSCLE SPASMS
     Dosage: 7.5 GRAM, BID
     Route: 048
     Dates: start: 201703
  4. TRAZODONE HYDROCHLORIDE. [Concomitant]
     Active Substance: TRAZODONE HYDROCHLORIDE
     Dosage: 25 MILLIGRAM, QD
     Route: 048
     Dates: start: 201703
  5. TEMODAL [Suspect]
     Active Substance: TEMOZOLOMIDE
     Indication: MALIGNANT GLIOMA
     Dosage: 200 MILLIGRAM, ONCE A DAY FOR 5 CONSECUTIVE DAYS,  23 DAYS OF WITHDRAWAL.
     Route: 041
     Dates: start: 20170510, end: 20181121
  6. TEMODAL [Suspect]
     Active Substance: TEMOZOLOMIDE
     Dosage: 280 MILLIGRAM, QD
     Route: 048
     Dates: start: 20170412, end: 20170416
  7. TEMODAL [Suspect]
     Active Substance: TEMOZOLOMIDE
     Indication: MALIGNANT GLIOMA
     Dosage: 320 MILLIGRAM, QD
     Route: 048
     Dates: start: 20170315, end: 20170319
  8. TEMODAL [Suspect]
     Active Substance: TEMOZOLOMIDE
     Dosage: 200 MILLIGRAM, QD
     Route: 041
     Dates: start: 20181215, end: 20181218

REACTIONS (4)
  - Rash [Recovering/Resolving]
  - Wrong technique in product usage process [Unknown]
  - Vasculitis [Unknown]
  - Product use issue [Unknown]

NARRATIVE: CASE EVENT DATE: 2017
